FAERS Safety Report 6829825-X (Version None)
Quarter: 2010Q3

REPORT INFORMATION
  Report Type: 
  Country: None (occurrence: None)
  Receive Date: 20100706
  Receipt Date: 20100617
  Transmission Date: 20110219
  Serious: Yes (Death)
  Sender: FDA-Public Use
  Company Number: 2010PL000075

PATIENT
  Age: 45 Year
  Sex: Female

DRUGS (1)
  1. LOTRONEX [Suspect]
     Indication: PRODUCT USED FOR UNKNOWN INDICATION
     Dosage: 0.5 MG; BID

REACTIONS (1)
  - DEATH [None]
